FAERS Safety Report 9379328 (Version 3)
Quarter: 2013Q3

REPORT INFORMATION
  Report Type: Spontaneous
  Country: US (occurrence: None)
  Receive Date: 20130626
  Receipt Date: 20130717
  Transmission Date: 20140515
  Serious: Yes (Death, Hospitalization)
  Sender: FDA-Public Use
  Company Number: UTC-034433

PATIENT
  Age: 47 Year
  Sex: Female
  Weight: 83.1 kg

DRUGS (3)
  1. REMODULIN [Suspect]
     Indication: COR PULMONALE CHRONIC
     Dosage: (0.091 UG/KG, 1 IN 1 MIN)
     Route: 058
     Dates: start: 20110629
  2. ADCIRCA [Suspect]
     Indication: PRODUCT USED FOR UNKNOWN INDICATION
  3. LETAIRIS [Suspect]
     Indication: PULMONARY HYPERTENSION

REACTIONS (3)
  - Death [None]
  - Cardiogenic shock [None]
  - Pulmonary hypertension [None]
